FAERS Safety Report 5488415-4 (Version None)
Quarter: 2007Q3

REPORT INFORMATION
  Report Type: 
  Country: None (occurrence: None)
  Receive Date: 20070927
  Receipt Date: 20070716
  Transmission Date: 20080115
  Serious: No
  Sender: FDA-Public Use
  Company Number: US-CVT-070131

PATIENT
  Age: 45 Year
  Sex: Female

DRUGS (19)
  1. RANEXA [Suspect]
     Indication: ANGINA PECTORIS
     Dosage: 500 MG, BID, ORAL
     Route: 048
     Dates: start: 20070620
  2. ADIPEX [Concomitant]
  3. ALDACTAZIDE [Concomitant]
  4. NAPROXEN/00256201/ (NAPROXEN) [Concomitant]
  5. ASPIRIN [Concomitant]
  6. BENICAR [Concomitant]
  7. CHROMIUM (CHROMIUM) [Concomitant]
  8. CORGARD [Concomitant]
  9. DARVOCET [Concomitant]
  10. KLOR-CON [Concomitant]
  11. MVI (VITAMINS NOS) [Concomitant]
  12. NITROGLYCERIN [Concomitant]
  13. PLAVIX [Concomitant]
  14. SINGULAIR/01362601/ (MONTELUKAST) [Concomitant]
  15. SYNTHROID [Concomitant]
  16. VALTREX [Concomitant]
  17. ZEBETA [Concomitant]
  18. CLARINEX/01398501/ (DESLORATADINE) [Concomitant]
  19. TORADOL [Concomitant]

REACTIONS (2)
  - DYSGEUSIA [None]
  - PAROSMIA [None]
